FAERS Safety Report 23419012 (Version 1)
Quarter: 2024Q1

REPORT INFORMATION
  Report Type: Other
  Country: US (occurrence: US)
  Receive Date: 20240118
  Receipt Date: 20240118
  Transmission Date: 20240409
  Serious: No
  Sender: FDA-Public Use
  Company Number: US-UROVANT SCIENCES GMBH-202401-URV-000011

PATIENT
  Age: 52 Year
  Sex: Female

DRUGS (1)
  1. GEMTESA [Suspect]
     Active Substance: VIBEGRON
     Indication: Bladder disorder
     Dosage: UNK
     Route: 065
     Dates: start: 20231219

REACTIONS (3)
  - Adverse event [Unknown]
  - Feeling abnormal [Unknown]
  - Nodule [Unknown]

NARRATIVE: CASE EVENT DATE: 20231201
